FAERS Safety Report 8776859 (Version 1)
Quarter: 2012Q4

REPORT INFORMATION
  Report Type: 
  Country: US (occurrence: US)
  Receive Date: 20120911
  Receipt Date: 20120911
  Transmission Date: 20130627
  Serious: Yes (Hospitalization)
  Sender: FDA-Public Use
  Company Number: US-B.I. PHARMACEUTICALS,INC./RIDGEFIELD-2012-BP-22244BP

PATIENT
  Age: 86 Year
  Sex: Female
  Weight: 64 kg

DRUGS (12)
  1. SPIRIVA [Suspect]
     Indication: PULMONARY HYPERTENSION
     Dosage: 18 mcg
     Route: 055
     Dates: start: 2007
  2. TIKOSYN [Concomitant]
     Indication: ATRIAL FIBRILLATION
     Dosage: 500 mg
     Route: 048
     Dates: start: 2007
  3. CALCIUM + VIT. D [Concomitant]
     Indication: PROPHYLAXIS
     Dosage: 1000 mg
     Route: 048
     Dates: start: 1987
  4. METOPROLOL [Concomitant]
     Indication: CARDIAC DISORDER
     Dosage: 25 mg
     Route: 048
     Dates: start: 1995
  5. MAGNESIUM [Concomitant]
     Indication: CARDIAC DISORDER
     Dosage: 400 mg
     Route: 048
     Dates: start: 20120820
  6. LISINOPRIL [Concomitant]
     Indication: HYPERTENSION
     Route: 048
     Dates: start: 1995
  7. ASPIRIN [Concomitant]
     Indication: CARDIAC DISORDER
     Dosage: 81 mg
     Route: 048
     Dates: start: 1995
  8. IRON SLOW RELEASE [Concomitant]
     Indication: ANAEMIA
     Route: 048
     Dates: start: 2005
  9. LYRICA [Concomitant]
     Indication: NEURALGIA
     Route: 048
     Dates: start: 1995
  10. LYRICA [Concomitant]
     Indication: HERPES ZOSTER
  11. SIMVASTATIN [Concomitant]
     Indication: BLOOD CHOLESTEROL INCREASED
     Route: 048
     Dates: start: 1995
  12. CIALIS [Concomitant]
     Indication: PULMONARY HYPERTENSION
     Route: 048
     Dates: start: 2010

REACTIONS (2)
  - Atrial fibrillation [Unknown]
  - Product quality issue [Unknown]
